FAERS Safety Report 25292558 (Version 1)
Quarter: 2025Q2

REPORT INFORMATION
  Report Type: Spontaneous
  Country: US (occurrence: US)
  Receive Date: 20250510
  Receipt Date: 20250510
  Transmission Date: 20250716
  Serious: No
  Sender: SANOFI AVENTIS
  Company Number: US-SA-2025SA128845

PATIENT
  Sex: Male
  Weight: 69.388 kg

DRUGS (1)
  1. DUPIXENT [Suspect]
     Active Substance: DUPILUMAB
     Dosage: 600 MG (300MG 2 PENS), QOW
     Route: 058

REACTIONS (1)
  - Extra dose administered [Unknown]
